FAERS Safety Report 11038321 (Version 1)
Quarter: 2015Q2

REPORT INFORMATION
  Report Type: Spontaneous
  Country: ES (occurrence: ES)
  Receive Date: 20150416
  Receipt Date: 20150416
  Transmission Date: 20150821
  Serious: Yes (Other)
  Sender: FDA-Public Use
  Company Number: ES-TEVA-554973ISR

PATIENT

DRUGS (1)
  1. COPAXONE [Suspect]
     Active Substance: GLATIRAMER ACETATE
     Route: 058

REACTIONS (8)
  - Induration [Unknown]
  - Rash macular [Unknown]
  - Swelling [Unknown]
  - Discomfort [Unknown]
  - Panniculitis [Unknown]
  - Contusion [Unknown]
  - Lipoatrophy [Unknown]
  - Pain [Unknown]
